FAERS Safety Report 4473437-2 (Version None)
Quarter: 2004Q4

REPORT INFORMATION
  Report Type: 
  Country: None (occurrence: None)
  Receive Date: 20040920
  Receipt Date: 20030903
  Transmission Date: 20050328
  Serious: Yes (Death)
  Sender: FDA-Public Use
  Company Number: S03-USA-03011-01

PATIENT
  Age: 23 Year
  Sex: Male

DRUGS (7)
  1. CELEXA [Suspect]
     Indication: DEPRESSION
     Dosage: 20 MG QD PO
     Route: 048
     Dates: start: 20021201, end: 20030205
  2. CELEBREX [Concomitant]
  3. TIAZAC [Concomitant]
  4. ASPIRIN [Concomitant]
  5. VIAGRA [Concomitant]
  6. KLONOPIN [Concomitant]
  7. NEURONTIN [Concomitant]

REACTIONS (2)
  - HEPATIC STEATOSIS [None]
  - OVERDOSE [None]
